FAERS Safety Report 9725432 (Version 1)
Quarter: 2013Q4

REPORT INFORMATION
  Report Type: Spontaneous
  Country: US (occurrence: None)
  Receive Date: 20131202
  Receipt Date: 20131202
  Transmission Date: 20140711
  Serious: Yes (Disabling)
  Sender: FDA-Public Use
  Company Number: None

PATIENT
  Age: 38 Year
  Sex: Male
  Weight: 120.2 kg

DRUGS (1)
  1. LEVAQUIN [Suspect]
     Indication: PHARYNGITIS STREPTOCOCCAL
     Dates: start: 20070102, end: 20070112

REACTIONS (17)
  - Cognitive disorder [None]
  - Amnesia [None]
  - Polyneuropathy [None]
  - Amyloidosis [None]
  - Multiple chemical sensitivity [None]
  - Liver injury [None]
  - Fatigue [None]
  - Dizziness [None]
  - Nerve injury [None]
  - Sensory loss [None]
  - Gallbladder disorder [None]
  - Stress [None]
  - Diarrhoea [None]
  - Nausea [None]
  - Cholelithiasis [None]
  - Toxicity to various agents [None]
  - Neurotoxicity [None]
